FAERS Safety Report 4781056-3 (Version None)
Quarter: 2005Q3

REPORT INFORMATION
  Report Type: 
  Country: None (occurrence: None)
  Receive Date: 20050926
  Receipt Date: 20050913
  Transmission Date: 20060218
  Serious: Yes (Death, Life-Threatening, Hospitalization)
  Sender: FDA-Public Use
  Company Number: 1343-13525

PATIENT
  Age: 44 Year
  Sex: Male
  Weight: 80 kg

DRUGS (11)
  1. VIRACEPT [Suspect]
     Indication: HIV INFECTION
     Dosage: 500 MG BID, ORAL
     Route: 048
     Dates: start: 19981001, end: 20010407
  2. COMBIVIR [Suspect]
     Indication: HIV INFECTION
     Dosage: 2 TABLET BID, ORAL
     Route: 048
     Dates: start: 19991201, end: 20010407
  3. ATENOLOL [Suspect]
     Dosage: 50 MG DAILY, ORAL
     Route: 048
     Dates: end: 20010407
  4. METHADONE HCL [Suspect]
     Indication: POLYSUBSTANCE DEPENDENCE
     Dosage: 75 MG DAILY, ORAL
     Route: 048
     Dates: start: 19930101
  5. SERESTA FORTE (OXAZEPAM) [Suspect]
     Indication: INSOMNIA
     Dosage: 50 MG DAILY, ORAL
     Route: 048
  6. TRUXAL (CHLORPROTHIXENE HYDROCHLORIDE) [Concomitant]
  7. DUPHALAC [Concomitant]
  8. METHADONE HCL [Concomitant]
  9. KCL (POTASSIUM CHLORIDE) [Concomitant]
  10. FOLVITE (FOLIC ACID) [Concomitant]
  11. VITAMIN B6 (VITAMIN B6) [Concomitant]

REACTIONS (23)
  - ARRHYTHMIA [None]
  - ARTHRALGIA [None]
  - ASCITES [None]
  - BRADYCARDIA [None]
  - DIZZINESS [None]
  - DUODENAL ULCER [None]
  - DYSPNOEA EXERTIONAL [None]
  - ELECTROCARDIOGRAM ABNORMAL [None]
  - ELECTROCARDIOGRAM ST SEGMENT ABNORMAL [None]
  - EPILEPSY [None]
  - GENERAL PHYSICAL HEALTH DETERIORATION [None]
  - HAEMATEMESIS [None]
  - HEPATIC CIRRHOSIS [None]
  - INFLAMMATION [None]
  - LONG QT SYNDROME [None]
  - LOSS OF CONSCIOUSNESS [None]
  - PANCREATITIS [None]
  - PERITONITIS BACTERIAL [None]
  - SPLENOMEGALY [None]
  - SYNCOPE [None]
  - TORSADE DE POINTES [None]
  - VENTRICULAR EXTRASYSTOLES [None]
  - WEIGHT INCREASED [None]
